FAERS Safety Report 8214846-5 (Version None)
Quarter: 2012Q1

REPORT INFORMATION
  Report Type: 
  Country: None (occurrence: None)
  Receive Date: 20120316
  Receipt Date: 20120302
  Transmission Date: 20120608
  Serious: No
  Sender: FDA-Public Use
  Company Number: FR-ELI_LILLY_AND_COMPANY-FR201012006004

PATIENT
  Age: 48 Year
  Sex: Female

DRUGS (2)
  1. STABLON [Concomitant]
     Indication: INSOMNIA
     Dosage: UNK
     Dates: start: 20100323, end: 20110125
  2. CYMBALTA [Suspect]
     Indication: DEPRESSION
     Dosage: 60 MG, QD
     Route: 048
     Dates: start: 20100323, end: 20100515

REACTIONS (1)
  - HYPERTENSION [None]
